FAERS Safety Report 12731958 (Version 1)
Quarter: 2016Q3

REPORT INFORMATION
  Report Type: Spontaneous
  Country: US (occurrence: US)
  Receive Date: 20160912
  Receipt Date: 20160912
  Transmission Date: 20161109
  Serious: No
  Sender: FDA-Public Use
  Company Number: US-PFIZER INC-2016427092

PATIENT
  Age: 46 Year
  Sex: Male

DRUGS (3)
  1. TRICOR [Suspect]
     Active Substance: FENOFIBRATE
     Dosage: UNK
  2. CELEBREX [Suspect]
     Active Substance: CELECOXIB
     Dosage: UNK
  3. TRILIPIX [Suspect]
     Active Substance: FENOFIBRIC ACID
     Dosage: UNK

REACTIONS (1)
  - Drug hypersensitivity [Not Recovered/Not Resolved]

NARRATIVE: CASE EVENT DATE: 20110404
